FAERS Safety Report 9133569 (Version 1)
Quarter: 2013Q1

REPORT INFORMATION
  Report Type: Report from Study
  Country: US (occurrence: US)
  Receive Date: 20130129
  Receipt Date: 20130129
  Transmission Date: 20140127
  Serious: No
  Sender: FDA-Public Use
  Company Number: US-ABBOTT-12P-163-0927618-00

PATIENT
  Age: 61 Year
  Sex: Female

DRUGS (9)
  1. HUMIRA 40 MG/0.8 ML PEN [Suspect]
     Indication: RHEUMATOID ARTHRITIS
     Dates: start: 20120404
  2. METHOTREXATE [Concomitant]
     Indication: RHEUMATOID ARTHRITIS
     Dosage: 2.5MG 6 TABS WEEKLY ON SAT
  3. NAPROXEN [Concomitant]
     Indication: INFLAMMATION
  4. HYDROCODONE [Concomitant]
     Indication: RHEUMATOID ARTHRITIS
     Dosage: 5/500MG AS NEEDED
  5. FLEXERIL [Concomitant]
     Indication: MUSCLE SPASMS
     Dosage: 10MG 1-2 TABS AS NEEDED
  6. GLIPIZIDE W/METFORMIN [Concomitant]
     Indication: DIABETES MELLITUS
     Dosage: 500MG 1 TAB IN AM AND 1 TAB IN PM DAILY
  7. LISINOPRIL [Concomitant]
     Indication: HYPERTENSION
     Dosage: 5MG 2 TABS DAILY
  8. JANUVIA [Concomitant]
     Indication: DIABETES MELLITUS
  9. ATENOLOL [Concomitant]
     Indication: HEART RATE INCREASED

REACTIONS (1)
  - Dyspepsia [Not Recovered/Not Resolved]
